FAERS Safety Report 6953418-7 (Version None)
Quarter: 2010Q3

REPORT INFORMATION
  Report Type: 
  Country: None (occurrence: None)
  Receive Date: 20100829
  Receipt Date: 20100617
  Transmission Date: 20110219
  Serious: No
  Sender: FDA-Public Use
  Company Number: US-ABBOTT-10P-163-0651907-00

PATIENT
  Sex: Female
  Weight: 64.468 kg

DRUGS (3)
  1. NIASPAN [Suspect]
     Indication: CAROTID ARTERIOSCLEROSIS
     Dosage: AT BEDTIME
     Dates: start: 20100614
  2. NIASPAN [Suspect]
     Indication: BLOOD CHOLESTEROL INCREASED
  3. ASPIRIN [Concomitant]
     Indication: PRODUCT USED FOR UNKNOWN INDICATION

REACTIONS (4)
  - DIARRHOEA [None]
  - HOT FLUSH [None]
  - SOMNOLENCE [None]
  - VISION BLURRED [None]
